FAERS Safety Report 14784205 (Version 1)
Quarter: 2018Q2

REPORT INFORMATION
  Report Type: Spontaneous
  Country: DE (occurrence: DE)
  Receive Date: 20180420
  Receipt Date: 20180420
  Transmission Date: 20180711
  Serious: Yes (Other)
  Sender: FDA-Public Use
  Company Number: DE-TEVA-2018-DE-882321

PATIENT
  Sex: Female

DRUGS (3)
  1. SERTRALINE [Concomitant]
     Active Substance: SERTRALINE HYDROCHLORIDE
     Indication: DEPRESSION
  2. MIRTAZAPIN [Concomitant]
     Active Substance: MIRTAZAPINE
     Indication: DEPRESSION
  3. FEM7- 50 MIKROGRAMM [Suspect]
     Active Substance: ESTRADIOL HEMIHYDRATE
     Route: 065

REACTIONS (4)
  - Withdrawal bleed [None]
  - Postmenopausal haemorrhage [Not Recovered/Not Resolved]
  - Vaginal haemorrhage [None]
  - Endometrial hyperplasia [None]

NARRATIVE: CASE EVENT DATE: 201712
